FAERS Safety Report 9366735 (Version 1)
Quarter: 2013Q2

REPORT INFORMATION
  Report Type: Spontaneous
  Country: FR (occurrence: None)
  Receive Date: 20130620
  Receipt Date: 20130620
  Transmission Date: 20140414
  Serious: Yes (Hospitalization, Other)
  Sender: FDA-Public Use
  Company Number: ADR-2013-01020

PATIENT
  Sex: Female

DRUGS (1)
  1. BACLOFEN [Suspect]
     Dates: start: 20121017, end: 20130110

REACTIONS (7)
  - Oedema peripheral [None]
  - Confusional state [None]
  - Dysarthria [None]
  - Extensor plantar response [None]
  - Altered state of consciousness [None]
  - Choreoathetosis [None]
  - Overdose [None]
